FAERS Safety Report 7428955-1 (Version None)
Quarter: 2011Q2

REPORT INFORMATION
  Report Type: 
  Country: None (occurrence: None)
  Receive Date: 20110412
  Receipt Date: 20110330
  Transmission Date: 20111010
  Serious: Yes (Death, Hospitalization)
  Sender: FDA-Public Use
  Company Number: 2011PV000017

PATIENT
  Age: 52 Year
  Sex: Female
  Weight: 82 kg

DRUGS (9)
  1. METHOTREXATE [Suspect]
     Indication: LYMPHOMA
     Dosage: 5450 MG;IV
     Route: 042
     Dates: start: 20100701, end: 20100907
  2. CYTARABINE [Suspect]
     Indication: LYMPHOMA
     Dosage: 100 MG;IV
     Route: 042
     Dates: start: 20100818, end: 20100912
  3. LEVOTHYROX [Concomitant]
  4. RITUXIMAB (RITUXIMAB) [Suspect]
     Indication: LYMPHOMA
     Dosage: 680 MG;IV
     Route: 042
     Dates: start: 20100630, end: 20100906
  5. DEPOCYT [Suspect]
     Indication: METASTASES TO MENINGES
     Dosage: 50 MG;IT
     Route: 037
     Dates: start: 20090623, end: 20100908
  6. METHYLPREDNISOLONE [Suspect]
     Indication: LYMPHOMA
     Dosage: 110 MG;IV
     Route: 042
     Dates: start: 20100701, end: 20100912
  7. VINCRISTINE [Suspect]
     Indication: LYMPHOMA
     Dosage: 2 MG;IV
     Route: 042
     Dates: start: 20100701, end: 20100727
  8. DOXORUBICIN HCL [Suspect]
     Indication: LYMPHOMA
     Dosage: 109 MG;IV
     Route: 042
     Dates: start: 20100702, end: 20100728
  9. ENDOXAN /00021101/ (CYCLOPHOSPHAMIDE) [Suspect]
     Indication: LYMPHOMA
     Dosage: 250 MG;IV
     Route: 042
     Dates: start: 20100702, end: 20100730

REACTIONS (10)
  - GAIT DISTURBANCE [None]
  - PARALYSIS [None]
  - SPEECH DISORDER [None]
  - VISUAL IMPAIRMENT [None]
  - GENERAL PHYSICAL HEALTH DETERIORATION [None]
  - NERVOUS SYSTEM DISORDER [None]
  - AXONAL NEUROPATHY [None]
  - DYSPHAGIA [None]
  - RESPIRATORY FAILURE [None]
  - DYSPNOEA [None]
